FAERS Safety Report 19184790 (Version 1)
Quarter: 2021Q2

REPORT INFORMATION
  Report Type: Spontaneous
  Country: US (occurrence: US)
  Receive Date: 20210427
  Receipt Date: 20210427
  Transmission Date: 20210717
  Serious: No
  Sender: FDA-Public Use
  Company Number: US-TAKEDA-2021TUS025456

PATIENT
  Sex: Male
  Weight: 73 kg

DRUGS (1)
  1. GAMMAGARD LIQUID [Suspect]
     Active Substance: HUMAN IMMUNOGLOBULIN G
     Indication: PRIMARY IMMUNODEFICIENCY SYNDROME
     Dosage: 3 GRAM EVERY 4 DAYS
     Route: 058

REACTIONS (2)
  - Pyrexia [Recovered/Resolved]
  - Infusion related reaction [Recovered/Resolved]
